FAERS Safety Report 21002820 (Version 1)
Quarter: 2022Q2

REPORT INFORMATION
  Report Type: Spontaneous
  Country: GB (occurrence: GB)
  Receive Date: 20220624
  Receipt Date: 20220624
  Transmission Date: 20220721
  Serious: Yes (Disabling)
  Sender: FDA-Public Use
  Company Number: None

PATIENT
  Age: 51 Year
  Sex: Female
  Weight: 91 kg

DRUGS (1)
  1. DULOXETINE [Suspect]
     Active Substance: DULOXETINE
     Indication: Pain
     Dosage: UNKNOWN
     Dates: end: 20220615

REACTIONS (2)
  - Pain in extremity [Recovered/Resolved with Sequelae]
  - Muscular weakness [Unknown]

NARRATIVE: CASE EVENT DATE: 20220101
